FAERS Safety Report 4281306-6 (Version None)
Quarter: 2004Q1

REPORT INFORMATION
  Report Type: 
  Country: None (occurrence: None)
  Receive Date: 20040129
  Receipt Date: 20000203
  Transmission Date: 20041129
  Serious: Yes (Hospitalization)
  Sender: FDA-Public Use
  Company Number: CA-ROCHE-227932

PATIENT
  Sex: Male

DRUGS (1)
  1. TAMIFLU [Suspect]
     Indication: INFLUENZA
     Route: 048

REACTIONS (4)
  - BRONCHOPNEUMONIA [None]
  - HEPATITIS ACUTE [None]
  - JAUNDICE [None]
  - LIVER FUNCTION TEST ABNORMAL [None]
